FAERS Safety Report 6387852-3 (Version None)
Quarter: 2009Q4

REPORT INFORMATION
  Report Type: 
  Country: None (occurrence: None)
  Receive Date: 20091005
  Receipt Date: 20090929
  Transmission Date: 20100525
  Serious: Yes (Death, Hospitalization)
  Sender: FDA-Public Use
  Company Number: JP-BAYER-200913594BYL

PATIENT
  Age: 62 Year
  Sex: Male
  Weight: 59 kg

DRUGS (11)
  1. NEXAVAR [Suspect]
     Indication: HEPATIC NEOPLASM MALIGNANT
     Dosage: TOTAL DAILY DOSE: 800 MG  UNIT DOSE: 200 MG
     Route: 048
     Dates: start: 20090701, end: 20090812
  2. NEXAVAR [Suspect]
     Dosage: UNIT DOSE: 200 MG
     Route: 048
     Dates: start: 20090813, end: 20090826
  3. NEXAVAR [Suspect]
     Dosage: TOTAL DAILY DOSE: 400 MG  UNIT DOSE: 200 MG
     Route: 048
     Dates: start: 20090827, end: 20090903
  4. URSO 250 [Concomitant]
     Dosage: SINCE BEFORE ADMINISTRATION
     Route: 048
  5. SEVEN E_P [Concomitant]
     Dosage: SINCE BEFORE ADMINISTRATION
     Route: 048
  6. MARZULENE [Concomitant]
     Route: 048
  7. FAMOTIDINE [Concomitant]
     Dosage: SINCE BEFORE ADMINISTRATION
     Route: 048
  8. PROPETO [Concomitant]
     Indication: PROPHYLAXIS
     Route: 061
     Dates: start: 20090701
  9. ADOFEED [Concomitant]
     Dosage: 2-3/DAY
     Route: 062
     Dates: start: 20090703
  10. HEPAACT [Concomitant]
     Route: 048
     Dates: start: 20090709
  11. SELTEPNON [Concomitant]
     Route: 048
     Dates: start: 20090715

REACTIONS (6)
  - ASCITES [None]
  - DIARRHOEA [None]
  - HEPATIC NEOPLASM MALIGNANT [None]
  - LIVER DISORDER [None]
  - MALIGNANT ASCITES [None]
  - MUSCLE SPASMS [None]
